FAERS Safety Report 4988222-2 (Version None)
Quarter: 2006Q2

REPORT INFORMATION
  Report Type: 
  Country: None (occurrence: None)
  Receive Date: 20060501
  Receipt Date: 20060119
  Transmission Date: 20061013
  Serious: Yes (Death)
  Sender: FDA-Public Use
  Company Number: US-MERCK-0601USA02570

PATIENT
  Age: 53 Year
  Sex: Male
  Weight: 75 kg

DRUGS (1)
  1. VIOXX [Suspect]
     Indication: MYALGIA
     Route: 048
     Dates: start: 20010101, end: 20030101

REACTIONS (8)
  - ARTERIOSCLEROSIS [None]
  - CEREBROVASCULAR ACCIDENT [None]
  - DEPRESSION [None]
  - DEPRESSION SUICIDAL [None]
  - INSOMNIA [None]
  - MYOCARDIAL ISCHAEMIA [None]
  - PANIC ATTACK [None]
  - TRICUSPID VALVE INCOMPETENCE [None]
